FAERS Safety Report 15395530 (Version 3)
Quarter: 2018Q4

REPORT INFORMATION
  Report Type: Report from Study
  Country: DE (occurrence: DE)
  Receive Date: 20180918
  Receipt Date: 20181120
  Transmission Date: 20190204
  Serious: Yes (Life-Threatening, Hospitalization)
  Sender: FDA-Public Use
  Company Number: DE-JNJFOC-20180907479

PATIENT
  Age: 41 Year
  Sex: Male
  Weight: 89 kg

DRUGS (28)
  1. OLARATUMAB [Suspect]
     Active Substance: OLARATUMAB
     Indication: SARCOMA METASTATIC
     Route: 042
     Dates: start: 20180417, end: 2018
  2. MACROGOL [Concomitant]
     Active Substance: POLYETHYLENE GLYCOLS
     Route: 065
     Dates: start: 20180417
  3. HYDROMORPHON AL [Concomitant]
     Active Substance: HYDROMORPHONE HYDROCHLORIDE
     Route: 065
     Dates: start: 20180417
  4. FUROSEMIDE. [Concomitant]
     Active Substance: FUROSEMIDE
     Route: 065
     Dates: start: 20180417
  5. ZOMETA [Concomitant]
     Active Substance: ZOLEDRONIC ACID
     Route: 065
     Dates: start: 201801
  6. NEUPOGEN [Concomitant]
     Active Substance: FILGRASTIM
     Route: 065
     Dates: start: 20180417
  7. MESNA. [Suspect]
     Active Substance: MESNA
     Indication: SARCOMA METASTATIC
     Route: 042
     Dates: start: 20180417, end: 2018
  8. PIRACETAM [Concomitant]
     Active Substance: PIRACETAM
     Route: 065
     Dates: start: 20180417
  9. CLEMASTINE [Concomitant]
     Active Substance: CLEMASTINE
     Route: 065
     Dates: start: 20180417
  10. VOMEX A [Concomitant]
     Active Substance: DIMENHYDRINATE
     Route: 065
     Dates: start: 20180511
  11. IFOSFAMIDE. [Suspect]
     Active Substance: IFOSFAMIDE
     Indication: SARCOMA METASTATIC
     Route: 042
     Dates: start: 20180417
  12. BISACODYL. [Concomitant]
     Active Substance: BISACODYL
     Route: 065
  13. IDEOS [Concomitant]
     Active Substance: CALCIUM CARBONATE\CHOLECALCIFEROL
     Route: 065
     Dates: start: 20180418
  14. PANTOPRAZOL [Concomitant]
     Active Substance: PANTOPRAZOLE SODIUM
     Route: 065
     Dates: start: 20180417
  15. DEXAMETHASONE. [Concomitant]
     Active Substance: DEXAMETHASONE
     Route: 065
     Dates: start: 20180417
  16. DEXRAZOXANE. [Concomitant]
     Active Substance: DEXRAZOXANE
     Route: 065
     Dates: start: 20180417
  17. OLANZAPINE. [Concomitant]
     Active Substance: OLANZAPINE
     Route: 065
     Dates: start: 20180515
  18. OLARATUMAB [Suspect]
     Active Substance: OLARATUMAB
     Indication: SARCOMA METASTATIC
     Route: 042
     Dates: start: 20180515
  19. MESNA. [Suspect]
     Active Substance: MESNA
     Indication: SARCOMA METASTATIC
     Route: 042
     Dates: start: 20180508
  20. MOVENTIG [Concomitant]
     Active Substance: NALOXEGOL OXALATE
     Route: 065
     Dates: start: 20180419
  21. NATRIUMPICOSULFAT [Concomitant]
     Route: 065
     Dates: start: 20180417
  22. METOCLOPRAMIDE. [Concomitant]
     Active Substance: METOCLOPRAMIDE
     Route: 065
     Dates: start: 20180417
  23. SERTRALINE [Concomitant]
     Active Substance: SERTRALINE HYDROCHLORIDE
     Route: 065
     Dates: start: 20180511
  24. NOVALGIN (METAMIZOLE SODIUM) [Concomitant]
     Active Substance: METAMIZOLE SODIUM
     Route: 065
  25. DOXURUBICIN [Suspect]
     Active Substance: DOXORUBICIN
     Indication: SARCOMA METASTATIC
     Route: 042
     Dates: start: 20180417
  26. AMPHO-MORONAL [Concomitant]
     Active Substance: AMPHOTERICIN B
     Route: 065
     Dates: start: 20180417
  27. ALIZAPRIDE [Concomitant]
     Active Substance: ALIZAPRIDE
     Route: 065
     Dates: start: 20180417
  28. ONDANSETRON [Concomitant]
     Active Substance: ONDANSETRON
     Route: 065
     Dates: start: 20180417

REACTIONS (2)
  - Groin abscess [Unknown]
  - Febrile neutropenia [Recovered/Resolved]

NARRATIVE: CASE EVENT DATE: 20180628
